FAERS Safety Report 4518991-7 (Version None)
Quarter: 2004Q4

REPORT INFORMATION
  Report Type: 
  Country: None (occurrence: None)
  Receive Date: 20041201
  Receipt Date: 20041112
  Transmission Date: 20050328
  Serious: Yes (Other)
  Sender: FDA-Public Use
  Company Number: 2004091200

PATIENT
  Age: 89 Year
  Sex: Male

DRUGS (3)
  1. CARDURA XL [Suspect]
     Indication: PROSTATITIS
     Dosage: 4 MG (4 MG, 1 IN 1 D), ORAL
     Route: 048
     Dates: start: 20031201, end: 20041111
  2. NIFEDIPINE [Concomitant]
  3. ALL OTHER THERAPEUTIC PRODUCTS (ALL OTHER THERAPEUTIC PRODUCTS) [Concomitant]

REACTIONS (2)
  - ATRIAL FIBRILLATION [None]
  - TACHYCARDIA [None]
